FAERS Safety Report 14073401 (Version 31)
Quarter: 2020Q1

REPORT INFORMATION
  Report Type: Report from Study
  Country: CA (occurrence: CA)
  Receive Date: 20171011
  Receipt Date: 20200210
  Transmission Date: 20200409
  Serious: Yes (Life-Threatening, Hospitalization, Other)
  Sender: FDA-Public Use
  Company Number: CA-SA-2017SA087661

PATIENT
  Age: 27 Year
  Sex: Female

DRUGS (13)
  1. DIMENHYDRINATE. [Concomitant]
     Active Substance: DIMENHYDRINATE
     Indication: PREMEDICATION
     Dosage: 50 MG,PRN
     Route: 048
     Dates: start: 20170509
  2. CONCERTA [Concomitant]
     Active Substance: METHYLPHENIDATE HYDROCHLORIDE
     Dosage: UNK UNK,QD
     Route: 048
  3. METHYLPREDNISOLONE. [Concomitant]
     Active Substance: METHYLPREDNISOLONE
     Indication: PREMEDICATION
     Dosage: 1 G,UNK
     Route: 042
     Dates: start: 20170509, end: 20170511
  4. ACETAMINOPHEN. [Concomitant]
     Active Substance: ACETAMINOPHEN
     Indication: PREMEDICATION
     Dosage: 1000 MG,PRN
     Route: 048
     Dates: start: 20170509
  5. ALEMTUZUMAB [Suspect]
     Active Substance: ALEMTUZUMAB
     Indication: RELAPSING-REMITTING MULTIPLE SCLEROSIS
     Dosage: 12 MG,QD
     Route: 041
     Dates: start: 20170509, end: 20170511
  6. DIPHENHYDRAMINE. [Concomitant]
     Active Substance: DIPHENHYDRAMINE
     Indication: PREMEDICATION
     Dosage: 50 MG,PRN
     Route: 048
     Dates: start: 20170509
  7. WELLBUTRIN [Concomitant]
     Active Substance: BUPROPION HYDROCHLORIDE
     Dosage: 150 MG,BID
     Route: 048
  8. SYNTHROID [Concomitant]
     Active Substance: LEVOTHYROXINE SODIUM
     Indication: HYPOTHYROIDISM
     Dosage: .025 MG,QD
     Route: 048
  9. ERGOCALCIFEROL. [Concomitant]
     Active Substance: ERGOCALCIFEROL
     Indication: NUTRITIONAL SUPPLEMENTATION
     Dosage: UNK UNK,QD
     Route: 048
  10. LORAZEPAM. [Concomitant]
     Active Substance: LORAZEPAM
     Indication: SLEEP DISORDER
     Dosage: 1 MG,PRN
     Route: 048
  11. RANITIDINE. [Concomitant]
     Active Substance: RANITIDINE
     Indication: PREMEDICATION
     Dosage: 150 MG,PRN
     Route: 048
     Dates: start: 20170509
  12. IMOVANE [Concomitant]
     Active Substance: ZOPICLONE
     Dosage: UNK UNK,PRN
     Route: 048
  13. ACICLOVIR [Concomitant]
     Active Substance: ACYCLOVIR
     Indication: PREMEDICATION
     Dosage: 50 MG,UNK
     Route: 048
     Dates: start: 20170509

REACTIONS (46)
  - Mastitis [Recovered/Resolved]
  - Blood bilirubin increased [Unknown]
  - Dyspnoea [Recovered/Resolved]
  - Bacterial test positive [Unknown]
  - Lymphocyte count decreased [Recovered/Resolved]
  - Chest discomfort [Recovered/Resolved]
  - Muscular weakness [Recovering/Resolving]
  - Blood thyroid stimulating hormone abnormal [Not Recovered/Not Resolved]
  - Monocyte percentage increased [Not Recovered/Not Resolved]
  - Red cell distribution width decreased [Not Recovered/Not Resolved]
  - Neutrophil percentage increased [Recovered/Resolved]
  - Urine abnormality [Recovered/Resolved]
  - Nausea [Recovered/Resolved]
  - Eosinophil count increased [Recovered/Resolved]
  - Nipple disorder [Recovered/Resolved]
  - Hypoaesthesia [Recovered/Resolved]
  - Haemoglobin decreased [Recovered/Resolved]
  - Alanine aminotransferase increased [Not Recovered/Not Resolved]
  - Haematocrit decreased [Recovered/Resolved]
  - Basophil percentage increased [Recovered/Resolved]
  - Monocyte count increased [Recovered/Resolved]
  - Basophil count increased [Recovered/Resolved]
  - Hypocalcaemia [Recovered/Resolved]
  - Vomiting [Recovered/Resolved]
  - Eosinophil percentage increased [Recovered/Resolved]
  - Creatinine urine increased [Recovered/Resolved]
  - Hypoparathyroidism secondary [Unknown]
  - Weight increased [Not Recovered/Not Resolved]
  - Exposure during pregnancy [Recovered/Resolved]
  - Blood calcium decreased [Not Recovered/Not Resolved]
  - Blood creatinine increased [Recovered/Resolved]
  - Blood thyroid stimulating hormone decreased [Not Recovered/Not Resolved]
  - Platelet count decreased [Recovered/Resolved]
  - Blood parathyroid hormone decreased [Unknown]
  - Asthenia [Recovered/Resolved]
  - Thyroid cancer [Not Recovered/Not Resolved]
  - Multiple sclerosis relapse [Recovered/Resolved]
  - Blood thyroid stimulating hormone increased [Recovered/Resolved]
  - Lymphocyte percentage decreased [Recovered/Resolved]
  - Headache [Recovered/Resolved]
  - White blood cell count decreased [Recovered/Resolved]
  - Blood calcium increased [Recovered/Resolved]
  - Blood calcium decreased [Recovered/Resolved]
  - Chromaturia [Recovered/Resolved]
  - Calcium ionised decreased [Recovered/Resolved]
  - Red blood cell count decreased [Recovered/Resolved]

NARRATIVE: CASE EVENT DATE: 2017
